FAERS Safety Report 4942999-0 (Version None)
Quarter: 2006Q1

REPORT INFORMATION
  Report Type: 
  Country: None (occurrence: None)
  Receive Date: 20060314
  Receipt Date: 20060119
  Transmission Date: 20060701
  Serious: Yes (Hospitalization)
  Sender: FDA-Public Use
  Company Number: FR-GLAXOSMITHKLINE-B0407585A

PATIENT
  Age: 79 Year
  Sex: Female
  Weight: 45 kg

DRUGS (4)
  1. AVANDAMET [Suspect]
     Indication: DIABETES MELLITUS NON-INSULIN-DEPENDENT
     Route: 048
     Dates: start: 20050101, end: 20060101
  2. AMLOR [Concomitant]
     Indication: HYPERTENSION
     Dosage: 5MG PER DAY
     Route: 048
     Dates: start: 20000101
  3. ALDACTONE [Concomitant]
     Indication: HYPERTENSION
     Dosage: 25MG PER DAY
     Route: 048
     Dates: start: 20000101
  4. TEMESTA [Concomitant]
     Dosage: 1MG PER DAY
     Route: 048
     Dates: start: 20000101

REACTIONS (9)
  - ANOREXIA [None]
  - ASTHENIA [None]
  - HEPATIC ATROPHY [None]
  - HEPATIC CIRRHOSIS [None]
  - JAUNDICE [None]
  - PORTAL HYPERTENSION [None]
  - SPLENOMEGALY [None]
  - SPLENORENAL SHUNT [None]
  - VARICES OESOPHAGEAL [None]
